FAERS Safety Report 25710679 (Version 1)
Quarter: 2025Q3

REPORT INFORMATION
  Report Type: Spontaneous
  Country: CN (occurrence: CN)
  Receive Date: 20250821
  Receipt Date: 20250821
  Transmission Date: 20251021
  Serious: Yes (Other)
  Sender: BAYER HEALTHCARE PHARMACEUTICALS INC.
  Company Number: CN-BAYER-2025A110940

PATIENT
  Age: 60 Year
  Sex: Male

DRUGS (2)
  1. ULTRAVIST [Suspect]
     Active Substance: IOPROMIDE
     Indication: Computerised tomogram
     Route: 042
     Dates: start: 20250806, end: 20250806
  2. ULTRAVIST [Suspect]
     Active Substance: IOPROMIDE
     Indication: Intestinal mass

REACTIONS (7)
  - Cyanosis [Recovering/Resolving]
  - Rash pruritic [Not Recovered/Not Resolved]
  - Conjunctival hyperaemia [Recovering/Resolving]
  - Blood pressure decreased [Recovering/Resolving]
  - Heart rate decreased [Recovering/Resolving]
  - Respiratory rate increased [None]
  - Vision blurred [Recovering/Resolving]

NARRATIVE: CASE EVENT DATE: 20250806
